FAERS Safety Report 7687202-6 (Version None)
Quarter: 2011Q3

REPORT INFORMATION
  Report Type: 
  Country: None (occurrence: None)
  Receive Date: 20110816
  Receipt Date: 20110816
  Transmission Date: 20111222
  Serious: Yes (Other)
  Sender: FDA-Public Use
  Company Number: CN-BAYER-2011-072961

PATIENT
  Age: 3 Year

DRUGS (1)
  1. GLUCOBAY [Suspect]
     Dosage: 50 MG, ONCE

REACTIONS (1)
  - NO ADVERSE EVENT [None]
